FAERS Safety Report 23173133 (Version 1)
Quarter: 2023Q4

REPORT INFORMATION
  Report Type: Other
  Country: DE (occurrence: DE)
  Receive Date: 20231111
  Receipt Date: 20231111
  Transmission Date: 20240109
  Serious: Yes (Other)
  Sender: FDA-Public Use
  Company Number: None

PATIENT
  Age: 49 Year
  Sex: Female
  Weight: 78 kg

DRUGS (2)
  1. COLCHICINE [Suspect]
     Active Substance: COLCHICINE
     Indication: Pericardial effusion
     Dosage: 0.5 MILLIGRAM, EVERY 12 HRS, 1 MG T?GLICH (0,5 MG MORGENS / 0,5 MG ABENDS)
     Route: 048
     Dates: start: 20230928, end: 20231021
  2. COLCHICINE [Suspect]
     Active Substance: COLCHICINE
     Indication: Pericarditis

REACTIONS (8)
  - Arrhythmia [None]
  - Polyneuropathy [None]
  - Palpitations [None]
  - Neuralgia [None]
  - Abdominal discomfort [Unknown]
  - Alopecia [None]
  - Diarrhoea [Recovered/Resolved]
  - Off label use [Unknown]

NARRATIVE: CASE EVENT DATE: 20230928
